FAERS Safety Report 10098130 (Version 1)
Quarter: 2014Q2

REPORT INFORMATION
  Report Type: Spontaneous
  Country: US (occurrence: US)
  Receive Date: 20140423
  Receipt Date: 20140423
  Transmission Date: 20141212
  Serious: Yes (Hospitalization)
  Sender: FDA-Public Use
  Company Number: US-ROCHE-1385613

PATIENT
  Sex: 0

DRUGS (2)
  1. AVASTIN [Suspect]
     Indication: GASTRIC CANCER
     Route: 065
  2. XELODA [Suspect]
     Indication: GASTRIC CANCER
     Route: 065

REACTIONS (2)
  - Gastrectomy [Unknown]
  - Metastases to liver [Unknown]
